FAERS Safety Report 5723581-4 (Version None)
Quarter: 2008Q2

REPORT INFORMATION
  Report Type: 
  Country: None (occurrence: None)
  Receive Date: 20080425
  Receipt Date: 20080415
  Transmission Date: 20081010
  Serious: Yes (Other)
  Sender: FDA-Public Use
  Company Number: 08H-028-0314186-00

PATIENT
  Age: 53 Year
  Sex: Male

DRUGS (10)
  1. PENTOTHAL [Suspect]
     Indication: INTRACRANIAL PRESSURE INCREASED
     Dosage: 5 MG/KG, ONCE, INTRAVENOUS BOLUS; 3.75 MG/KG/HR, INFUSION
  2. SODIUM CHLORIDE 3% (SODIUM CHLORIDE) [Concomitant]
  3. MANNITOL 20% (MANNITOL) [Concomitant]
  4. PROPOFOL [Concomitant]
  5. PHENYTOIN [Concomitant]
  6. NOREPINEPHRINE BITARTRATE [Concomitant]
  7. ANTIBIOTIC (ANTIBIOTICS) [Concomitant]
  8. INSULIN (INSULIN) [Concomitant]
  9. FENTANYL [Concomitant]
  10. ROCURONIUM BROMIDE [Concomitant]

REACTIONS (4)
  - CARDIAC ARREST [None]
  - HYPERKALAEMIA [None]
  - HYPOKALAEMIA [None]
  - REBOUND EFFECT [None]
